FAERS Safety Report 10259521 (Version 1)
Quarter: 2014Q2

REPORT INFORMATION
  Report Type: Spontaneous
  Country: US (occurrence: US)
  Receive Date: 20140625
  Receipt Date: 20140625
  Transmission Date: 20141212
  Serious: Yes (Other)
  Sender: FDA-Public Use
  Company Number: US-ASTELLAS-2014US002989

PATIENT
  Age: 82 Year
  Sex: Female

DRUGS (2)
  1. VESICARE [Suspect]
     Indication: PRODUCT USED FOR UNKNOWN INDICATION
     Route: 048
     Dates: start: 20140219, end: 20140311
  2. VESICARE [Suspect]
     Route: 048
     Dates: start: 20140312, end: 20140318

REACTIONS (7)
  - Drug ineffective [Unknown]
  - Tremor [Unknown]
  - Hallucination [Unknown]
  - Confusional state [Unknown]
  - Fatigue [Unknown]
  - Dry mouth [Unknown]
  - Asthenia [Unknown]
